FAERS Safety Report 10433305 (Version 3)
Quarter: 2017Q1

REPORT INFORMATION
  Report Type: Spontaneous
  Country: US (occurrence: US)
  Receive Date: 20140905
  Receipt Date: 20170327
  Transmission Date: 20170428
  Serious: Yes (Death, Hospitalization)
  Sender: FDA-Public Use
  Company Number: US-PFIZER INC-2014243879

PATIENT
  Age: 73 Year
  Sex: Male

DRUGS (11)
  1. ALBUTEROL. [Suspect]
     Active Substance: ALBUTEROL
     Dosage: UNK, 4X/DAY
  2. ASA 81 [Concomitant]
     Active Substance: ASPIRIN
     Dosage: UNK
  3. LIPITOR [Suspect]
     Active Substance: ATORVASTATIN CALCIUM
     Dosage: 20 MG, DAILY
  4. VITAMIN E [Concomitant]
     Active Substance: .ALPHA.-TOCOPHEROL
  5. LIPITOR [Suspect]
     Active Substance: ATORVASTATIN CALCIUM
     Dosage: 10 MG, DAILY
  6. CARDIZEM CD [Suspect]
     Active Substance: DILTIAZEM HYDROCHLORIDE
     Dosage: 240 MG, DAILY
  7. METOPROLOL TARTRATE. [Suspect]
     Active Substance: METOPROLOL TARTRATE
     Dosage: UNK
  8. VITAMIN B50 COMPLEX [Concomitant]
     Active Substance: BIOTIN\CALCIUM PANTOTHENATE\CHOLINE BITARTRATE\CYANOCOBALAMIN\FOLIC ACID\INOSITOL\NIACINAMIDE\PYRIDOXINE\RIBOFLAVIN\THIAMINE
     Dosage: UNK
  9. ZESTRIL [Suspect]
     Active Substance: LISINOPRIL
     Dosage: 10 MG, DAILY
  10. CENTRUM [Concomitant]
     Active Substance: VITAMINS
  11. DIAZEPAM. [Concomitant]
     Active Substance: DIAZEPAM
     Dosage: UNK UNK, AS NEEDED

REACTIONS (4)
  - Blood glucose decreased [Unknown]
  - Lung neoplasm malignant [Fatal]
  - Respiratory failure [Fatal]
  - Glycosylated haemoglobin increased [Unknown]
